FAERS Safety Report 8404075 (Version 2)
Quarter: 2013Q2

REPORT INFORMATION
  Report Type: Spontaneous
  Country: US (occurrence: None)
  Receive Date: 20111227
  Receipt Date: 20120703
  Transmission Date: 20140414
  Serious: Yes (Other)
  Sender: FDA-Public Use
  Company Number: PHEH2011US06679

PATIENT
  Age: 20 Year
  Sex: Female
  Weight: 88 kg

DRUGS (5)
  1. GILENYA [Suspect]
     Indication: MULTIPLE SCLEROSIS
     Route: 048
     Dates: start: 20110609
  2. DANTOIN (PHENYTOIN SODIUM) [Concomitant]
  3. DIAZEPAM (DIAZEPAM) [Concomitant]
  4. NEXIUM [Concomitant]
  5. VICODIN [Concomitant]

REACTIONS (3)
  - HERPES ZOSTER [None]
  - RASH [None]
  - PAIN [None]
